FAERS Safety Report 9493539 (Version 1)
Quarter: 2013Q3

REPORT INFORMATION
  Report Type: Spontaneous
  Country: US (occurrence: US)
  Receive Date: 20130902
  Receipt Date: 20130902
  Transmission Date: 20140515
  Serious: Yes (Other)
  Sender: FDA-Public Use
  Company Number: US-PFIZER INC-2013248780

PATIENT
  Age: 83 Year
  Sex: Female
  Weight: 59.9 kg

DRUGS (3)
  1. PREMARIN [Suspect]
     Dosage: UNK
     Route: 067
  2. PREMARIN [Suspect]
     Dosage: UNK
     Route: 067
     Dates: start: 201308
  3. SYNTHROID [Concomitant]
     Dosage: UNK, 1X/DAY

REACTIONS (3)
  - Urinary tract infection [Not Recovered/Not Resolved]
  - Vulvovaginal pruritus [Not Recovered/Not Resolved]
  - Drug hypersensitivity [Unknown]
